FAERS Safety Report 8612988-3 (Version None)
Quarter: 2012Q3

REPORT INFORMATION
  Report Type: 
  Country: None (occurrence: None)
  Receive Date: 20120822
  Receipt Date: 20120822
  Transmission Date: 20120928
  Serious: Yes (Other)
  Sender: FDA-Public Use
  Company Number: US-PFIZER INC-2012199790

PATIENT

DRUGS (2)
  1. RISPERDAL [Suspect]
  2. ZOLOFT [Suspect]
     Indication: DEPRESSION

REACTIONS (8)
  - FAECALOMA [None]
  - FUNCTIONAL GASTROINTESTINAL DISORDER [None]
  - MITRAL VALVE INCOMPETENCE [None]
  - RIGHT VENTRICULAR HYPERTROPHY [None]
  - PULMONARY VALVE STENOSIS [None]
  - LEFT ATRIAL DILATATION [None]
  - CARDIAC MURMUR [None]
  - CONSTIPATION [None]
